FAERS Safety Report 6792647-2 (Version None)
Quarter: 2010Q2

REPORT INFORMATION
  Report Type: 
  Country: None (occurrence: None)
  Receive Date: 20100624
  Receipt Date: 20080904
  Transmission Date: 20101027
  Serious: Yes (Other)
  Sender: FDA-Public Use
  Company Number: US-PFIZER INC-2008075352

PATIENT
  Sex: Male
  Weight: 74.8 kg

DRUGS (2)
  1. GEODON [Suspect]
     Indication: BIPOLAR DISORDER
     Dates: start: 20010101
  2. HERBAL PREPARATION [Concomitant]

REACTIONS (2)
  - HYPERTENSION [None]
  - PROSTATOMEGALY [None]
